FAERS Safety Report 5105280-5 (Version None)
Quarter: 2006Q3

REPORT INFORMATION
  Report Type: 
  Country: None (occurrence: None)
  Receive Date: 20060911
  Receipt Date: 20060829
  Transmission Date: 20061208
  Serious: Yes (Death)
  Sender: FDA-Public Use
  Company Number: 2006SP000483

PATIENT
  Age: 64 Year
  Sex: Male

DRUGS (2)
  1. PEG-INTRON [Suspect]
     Indication: HEPATITIS
     Dosage: 150 MCG; QW; SC
     Route: 058
     Dates: end: 20060401
  2. RIBASPHERE [Suspect]
     Indication: HEPATITIS
     Dosage: 600 MG; BID;
     Dates: end: 20060401

REACTIONS (1)
  - CARDIAC ARREST [None]
